FAERS Safety Report 10149565 (Version 4)
Quarter: 2014Q2

REPORT INFORMATION
  Report Type: Spontaneous
  Country: US (occurrence: US)
  Receive Date: 20140502
  Receipt Date: 20140625
  Transmission Date: 20141212
  Serious: Yes (Other)
  Sender: FDA-Public Use
  Company Number: US-PFIZER INC-2014119244

PATIENT
  Age: 83 Year
  Sex: Male
  Weight: 74.83 kg

DRUGS (7)
  1. SUTENT [Suspect]
     Dosage: 50 MG, UNK
     Dates: start: 20130613
  2. COREG [Concomitant]
     Dosage: UNK
  3. ATORVASTATIN [Concomitant]
     Dosage: UNK
  4. DEXILANT [Concomitant]
     Dosage: UNK
  5. LASIX [Concomitant]
     Dosage: UNK
  6. LOMOTIL [Concomitant]
     Dosage: UNK
  7. PANCREASE HL [Concomitant]
     Dosage: UNK

REACTIONS (9)
  - Haemorrhage [Unknown]
  - Haemorrhage subcutaneous [Unknown]
  - Diarrhoea [Unknown]
  - Stomatitis [Unknown]
  - Palmar-plantar erythrodysaesthesia syndrome [Unknown]
  - Epistaxis [Unknown]
  - Increased appetite [Unknown]
  - Muscular weakness [Not Recovered/Not Resolved]
  - Erythema [Unknown]
